FAERS Safety Report 6167586-0 (Version None)
Quarter: 2009Q2

REPORT INFORMATION
  Report Type: 
  Country: None (occurrence: None)
  Receive Date: 20090424
  Receipt Date: 20090325
  Transmission Date: 20091009
  Serious: No
  Sender: FDA-Public Use
  Company Number: US-BAYER-200910962BCC

PATIENT
  Age: 48 Year
  Sex: Male
  Weight: 77 kg

DRUGS (2)
  1. ALEVE (CAPLET) [Suspect]
     Indication: BACK PAIN
     Dosage: TOTAL DAILY DOSE: 440 MG  UNIT DOSE: 220 MG
     Route: 048
     Dates: start: 20090318
  2. ALEVE (CAPLET) [Suspect]
     Dosage: BOTTLE COUNT 250/ HE TOOK AN UNKNOWN AMOUNT  ON 19-MAR-2009 THROUGH 24-MAR-2009
     Route: 048
     Dates: start: 20090319, end: 20090324

REACTIONS (1)
  - TINNITUS [None]
